FAERS Safety Report 4896540-1 (Version None)
Quarter: 2006Q1

REPORT INFORMATION
  Report Type: 
  Country: None (occurrence: None)
  Receive Date: 20060131
  Receipt Date: 20060125
  Transmission Date: 20060701
  Serious: Yes (Other)
  Sender: FDA-Public Use
  Company Number: US-KINGPHARMUSA00001-K200600088

PATIENT
  Age: 70 Year
  Sex: Male

DRUGS (15)
  1. KEMADRIN [Suspect]
     Indication: EXTRAPYRAMIDAL DISORDER
     Dosage: 5 MG, QD
     Route: 048
     Dates: start: 20051214, end: 20051224
  2. BENDROFLUAZIDE (BENDROFLUMETHIAZIDE) [Concomitant]
  3. LEUPROLIDE ACETATE [Concomitant]
  4. AMLODIPINE [Concomitant]
  5. ESOMEPRAZOLE [Concomitant]
  6. ASPIRIN [Concomitant]
  7. ATORVASTATIN CALCIUM [Concomitant]
  8. DIHYDROCODEINE [Concomitant]
  9. ISOSORBIDE MONONITRATE [Concomitant]
  10. LACTULOSE [Concomitant]
  11. BECLOMETHASONE DIPROPIONATE [Concomitant]
  12. QUININE SULPHATE [Concomitant]
  13. CALCIPOTRIENE [Concomitant]
  14. BENPERIDOL [Concomitant]
  15. TEMAZEPAM [Concomitant]

REACTIONS (4)
  - BLOOD BILIRUBIN INCREASED [None]
  - HAEMOGLOBIN DECREASED [None]
  - HAEMOLYTIC ANAEMIA [None]
  - HYPONATRAEMIA [None]
